FAERS Safety Report 23371639 (Version 1)
Quarter: 2024Q1

REPORT INFORMATION
  Report Type: Report from Study
  Country: US (occurrence: US)
  Receive Date: 20240105
  Receipt Date: 20240105
  Transmission Date: 20240410
  Serious: No
  Sender: FDA-Public Use
  Company Number: US-BIOVITRUM-2024-US-000018

PATIENT
  Age: 0 Year
  Sex: Male

DRUGS (5)
  1. SYNAGIS [Suspect]
     Active Substance: PALIVIZUMAB
     Indication: Heart disease congenital
     Dosage: ONCE A MONTH?SYNAGIS SOLN (100MG/ML) (50MG/0.5ML)
     Route: 030
     Dates: start: 202311
  2. SYNAGIS [Suspect]
     Active Substance: PALIVIZUMAB
     Indication: Respiratory failure
  3. SYNAGIS [Suspect]
     Active Substance: PALIVIZUMAB
     Indication: Hypoxia
  4. SYNAGIS [Suspect]
     Active Substance: PALIVIZUMAB
     Indication: Lung assist device therapy
  5. SYNAGIS [Suspect]
     Active Substance: PALIVIZUMAB
     Indication: Hypercapnia

REACTIONS (2)
  - Illness [Unknown]
  - Product dose omission issue [Unknown]
